FAERS Safety Report 7364366-5 (Version None)
Quarter: 2011Q1

REPORT INFORMATION
  Report Type: 
  Country: None (occurrence: None)
  Receive Date: 20110321
  Receipt Date: 20110131
  Transmission Date: 20110831
  Serious: No
  Sender: FDA-Public Use
  Company Number: US-ALLERGAN-1101377US

PATIENT
  Age: 51 Year
  Sex: Male

DRUGS (1)
  1. ZYMAXID [Suspect]
     Indication: REMOVAL OF FOREIGN BODY FROM EYE
     Dosage: 1 GTT, QID
     Route: 047
     Dates: start: 20110101, end: 20110130

REACTIONS (1)
  - VISION BLURRED [None]
